FAERS Safety Report 4715931-2 (Version None)
Quarter: 2005Q3

REPORT INFORMATION
  Report Type: 
  Country: None (occurrence: None)
  Receive Date: 20050718
  Receipt Date: 20050309
  Transmission Date: 20060218
  Serious: Yes (Hospitalization, Disabling)
  Sender: FDA-Public Use
  Company Number: US-MERCK-0503USA02071

PATIENT
  Age: 39 Year
  Sex: Male
  Weight: 57 kg

DRUGS (4)
  1. VIOXX [Suspect]
     Indication: SPINAL OSTEOARTHRITIS
     Route: 048
     Dates: start: 19991010, end: 20010225
  2. ASPIRIN [Concomitant]
     Route: 048
     Dates: start: 20001101
  3. LIPITOR [Concomitant]
     Indication: BLOOD CHOLESTEROL INCREASED
     Route: 048
     Dates: start: 19990101
  4. ZOCOR [Concomitant]
     Indication: BLOOD CHOLESTEROL INCREASED
     Route: 048
     Dates: start: 19990101

REACTIONS (9)
  - ANGINA UNSTABLE [None]
  - ANXIETY [None]
  - CORONARY ARTERY DISEASE [None]
  - HAEMORRHOIDS [None]
  - INJURY [None]
  - LUMBAR RADICULOPATHY [None]
  - MYOCARDIAL INFARCTION [None]
  - NECK INJURY [None]
  - SMOKER [None]
